FAERS Safety Report 5676622-7 (Version None)
Quarter: 2008Q1

REPORT INFORMATION
  Report Type: 
  Country: None (occurrence: None)
  Receive Date: 20080318
  Receipt Date: 20080306
  Transmission Date: 20080703
  Serious: Yes (Hospitalization)
  Sender: FDA-Public Use
  Company Number: E2020-02408-SPO-JP

PATIENT
  Age: 77 Year
  Sex: Female

DRUGS (4)
  1. ARICEPT [Suspect]
     Indication: MEMORY IMPAIRMENT
     Dosage: 3 MG, 1 IN 1 D, ORAL
     Route: 048
     Dates: start: 20060511, end: 20060501
  2. FLUZISAL (TIAPRIDE HYDROCHLORIDE) [Suspect]
     Indication: RESTLESSNESS
     Dosage: 75 MG, 3 IN 1 D
     Dates: start: 20080115, end: 20080218
  3. NORVASC [Concomitant]
  4. DIOVAN [Concomitant]

REACTIONS (6)
  - AGGRESSION [None]
  - BRADYCARDIA [None]
  - DEPRESSED LEVEL OF CONSCIOUSNESS [None]
  - INSOMNIA [None]
  - RESTLESSNESS [None]
  - UNRESPONSIVE TO STIMULI [None]
